FAERS Safety Report 19124767 (Version 1)
Quarter: 2021Q2

REPORT INFORMATION
  Report Type: Report from Study
  Country: US (occurrence: US)
  Receive Date: 20210413
  Receipt Date: 20210413
  Transmission Date: 20210717
  Serious: Yes (Other)
  Sender: FDA-Public Use
  Company Number: US-HRARD-2021000186

PATIENT
  Age: 59 Year
  Sex: Female

DRUGS (2)
  1. QUINAPRIL. [Concomitant]
     Active Substance: QUINAPRIL
     Dosage: NOT REPORTED.
     Route: 065
  2. METOPIRONE [Suspect]
     Active Substance: METYRAPONE
     Dosage: 02 TABLETS, 3 TIMES PER DAY
     Route: 048
     Dates: start: 20210303, end: 20210405

REACTIONS (3)
  - Off label use [Recovered/Resolved]
  - Renal impairment [Not Recovered/Not Resolved]
  - Hypertension [Not Recovered/Not Resolved]

NARRATIVE: CASE EVENT DATE: 20210303
